FAERS Safety Report 10061873 (Version 1)
Quarter: 2014Q2

REPORT INFORMATION
  Report Type: Spontaneous
  Country: SE (occurrence: None)
  Receive Date: 20140403
  Receipt Date: 20140403
  Transmission Date: 20141212
  Serious: Yes (Other)
  Sender: FDA-Public Use
  Company Number: COR_00033_2014

PATIENT
  Age: 5 Year
  Sex: Female

DRUGS (4)
  1. CEENU [Suspect]
     Indication: PRIMITIVE NEUROECTODERMAL TUMOUR
     Dosage: FREQUENCY UNSPECIFIED
  2. CARBOPLATIN (CARBOPLATIN) [Suspect]
     Indication: PRIMITIVE NEUROECTODERMAL TUMOUR
     Dosage: FREQUENCY UNSPECIFIED
  3. CISPLATIN (CISPLATIN) [Suspect]
     Indication: PRIMITIVE NEUROECTODERMAL TUMOUR
     Dosage: FREQUENCY UNSPECIFIED
  4. CYCLOPHOSPHAMIDE (CYCLOPHOSPHAMIDE) [Suspect]
     Indication: NEPHROBLASTOMA
     Dosage: FREQUENCY UNSPECIFIED

REACTIONS (1)
  - Ovarian disorder [None]
